FAERS Safety Report 6384471-X (Version None)
Quarter: 2009Q4

REPORT INFORMATION
  Report Type: 
  Country: None (occurrence: None)
  Receive Date: 20091001
  Receipt Date: 20090922
  Transmission Date: 20100525
  Serious: Yes (Hospitalization)
  Sender: FDA-Public Use
  Company Number: FR-NOVOPROD-270194

PATIENT
  Age: 30 Year
  Sex: Female
  Weight: 50 kg

DRUGS (2)
  1. NOVOLOG [Suspect]
     Indication: TYPE 1 DIABETES MELLITUS
     Dosage: UNK, QD (BOLUS AT 3 IU THEN 4 IU)
     Route: 058
     Dates: start: 20061001
  2. LANTUS [Concomitant]

REACTIONS (1)
  - MUSCLE NECROSIS [None]
